FAERS Safety Report 4432773-6 (Version None)
Quarter: 2004Q3

REPORT INFORMATION
  Report Type: 
  Country: None (occurrence: None)
  Receive Date: 20040721
  Receipt Date: 20040518
  Transmission Date: 20050211
  Serious: Yes (Other)
  Sender: FDA-Public Use
  Company Number: 2004022830

PATIENT
  Age: 43 Year
  Sex: Female

DRUGS (2)
  1. RELPAX [Suspect]
     Indication: ILL-DEFINED DISORDER
     Dosage: 40 MG, ORAL
     Route: 048
     Dates: start: 20030801, end: 20030801
  2. DIHYDROERGOTAMINE MESYLATE [Concomitant]

REACTIONS (3)
  - PARALYSIS [None]
  - PRURITUS [None]
  - THROAT TIGHTNESS [None]
